FAERS Safety Report 7578878-2 (Version None)
Quarter: 2011Q2

REPORT INFORMATION
  Report Type: 
  Country: None (occurrence: None)
  Receive Date: 20110628
  Receipt Date: 20110624
  Transmission Date: 20111010
  Serious: Yes (Hospitalization)
  Sender: FDA-Public Use
  Company Number: NO-PFIZER INC-2011140693

PATIENT
  Age: 19 Month
  Sex: Male

DRUGS (2)
  1. ZITHROMAX [Suspect]
     Dosage: 10 MG/KG  THREE TIMES A WEEK
     Dates: end: 20110606
  2. ZITHROMAX [Suspect]
     Indication: RESPIRATORY TRACT INFLAMMATION
     Dosage: 10MG/KG FOR TEN DAYS
     Dates: start: 20110524

REACTIONS (2)
  - HEPATOMEGALY [None]
  - LIVER DISORDER [None]
